FAERS Safety Report 6440626-7 (Version None)
Quarter: 2009Q4

REPORT INFORMATION
  Report Type: 
  Country: None (occurrence: None)
  Receive Date: 20091116
  Receipt Date: 20091101
  Transmission Date: 20100525
  Serious: Yes (Other)
  Sender: FDA-Public Use
  Company Number: PHHY2009ZA48166

PATIENT
  Age: 53 Year
  Sex: Male

DRUGS (1)
  1. ACLASTA [Suspect]
     Indication: OSTEOPOROSIS
     Dosage: UNK
     Dates: start: 20091027

REACTIONS (10)
  - ASTHENIA [None]
  - BACK PAIN [None]
  - CHILLS [None]
  - DIARRHOEA [None]
  - EYE INFECTION [None]
  - FATIGUE [None]
  - HAEMATOCHEZIA [None]
  - MUSCLE SPASMS [None]
  - MUSCULOSKELETAL PAIN [None]
  - PYREXIA [None]
